FAERS Safety Report 4659925-4 (Version None)
Quarter: 2005Q2

REPORT INFORMATION
  Report Type: 
  Country: None (occurrence: None)
  Receive Date: 20050510
  Receipt Date: 20050426
  Transmission Date: 20051028
  Serious: Yes (Hospitalization)
  Sender: FDA-Public Use
  Company Number: 2005066258

PATIENT
  Sex: Female
  Weight: 77.1115 kg

DRUGS (3)
  1. BEXTRA [Suspect]
     Indication: ARTHRITIS
     Dosage: 10 MG (10 MG, 1 IN 1 D), ORAL
     Route: 048
  2. CELEBREX [Suspect]
     Indication: ARTHRITIS
     Dosage: DAILY, ORAL
     Route: 048
  3. WARFARIN SODIUM [Suspect]
     Indication: ILL-DEFINED DISORDER

REACTIONS (7)
  - BODY HEIGHT DECREASED [None]
  - CARDIAC PACEMAKER INSERTION [None]
  - DRUG INEFFECTIVE [None]
  - HEART VALVE INSUFFICIENCY [None]
  - HYPERTENSION [None]
  - LABORATORY TEST ABNORMAL [None]
  - OSTEOPOROSIS [None]
